FAERS Safety Report 15978604 (Version 1)
Quarter: 2019Q1

REPORT INFORMATION
  Report Type: Spontaneous
  Country: US (occurrence: US)
  Receive Date: 20190219
  Receipt Date: 20190219
  Transmission Date: 20190418
  Serious: No
  Sender: FDA-Public Use
  Company Number: US-ELI_LILLY_AND_COMPANY-US201902000441

PATIENT
  Sex: Female

DRUGS (1)
  1. HUMULIN N [Suspect]
     Active Substance: INSULIN HUMAN
     Indication: GESTATIONAL DIABETES
     Dosage: UNK UNK, DAILY
     Route: 065
     Dates: start: 20190128

REACTIONS (6)
  - Headache [Unknown]
  - Pharyngeal paraesthesia [Unknown]
  - Maternal exposure during pregnancy [Unknown]
  - Dysgeusia [Unknown]
  - Nausea [Unknown]
  - Incorrect dose administered [Unknown]
